FAERS Safety Report 12530334 (Version 5)
Quarter: 2017Q1

REPORT INFORMATION
  Report Type: Spontaneous
  Country: US (occurrence: US)
  Receive Date: 20160706
  Receipt Date: 20170216
  Transmission Date: 20170428
  Serious: Yes (Other)
  Sender: FDA-Public Use
  Company Number: US-ACTAVIS-2016-10832

PATIENT
  Sex: Female

DRUGS (19)
  1. TAMOXIFEN CITRATE (ACTAVIS LABORATORIES FL) [Suspect]
     Active Substance: TAMOXIFEN CITRATE
     Indication: BREAST CANCER RECURRENT
     Dosage: UNK
     Route: 065
     Dates: start: 20131210, end: 20140520
  2. HERCEPTIN [Suspect]
     Active Substance: TRASTUZUMAB
     Indication: BREAST CANCER RECURRENT
     Dosage: UNK
     Route: 065
     Dates: start: 20131228
  3. PERTUZUMAB [Suspect]
     Active Substance: PERTUZUMAB
     Indication: BREAST CANCER RECURRENT
     Dosage: UNK
     Route: 065
     Dates: start: 20140116
  4. TAXOTERE [Suspect]
     Active Substance: DOCETAXEL
     Indication: BREAST CANCER RECURRENT
     Dosage: 6 CYCLES
     Route: 065
  5. VITAMIN B COMPLEX [Concomitant]
     Active Substance: CYANOCOBALAMIN\DEXPANTHENOL\NIACINAMIDE\PYRIDOXINE HYDROCHLORIDE\RIBOFLAVIN 5^-PHOSPHATE SODIUM\THIAMINE HYDROCHLORIDE\VITAMIN B COMPLEX
     Indication: PRODUCT USED FOR UNKNOWN INDICATION
     Route: 065
  6. TAMOXIFEN CITRATE (ACTAVIS LABORATORIES FL) [Suspect]
     Active Substance: TAMOXIFEN CITRATE
     Indication: HER-2 POSITIVE BREAST CANCER
  7. CARBOPLATIN (WATSON LABORATORIES) [Suspect]
     Active Substance: CARBOPLATIN
     Indication: BREAST CANCER RECURRENT
     Dosage: 6 CYCLES
     Route: 065
  8. CYCLOPHOSPHAMIDE MONOHYDRATE [Suspect]
     Active Substance: CYCLOPHOSPHAMIDE
     Indication: BREAST CANCER METASTATIC
     Dosage: 4 CYCLES
     Route: 065
     Dates: start: 20111108, end: 201201
  9. ARIMIDEX [Suspect]
     Active Substance: ANASTROZOLE
     Indication: DISEASE PROGRESSION
     Dosage: UNK
     Route: 065
     Dates: start: 20140520
  10. FASLODEX [Suspect]
     Active Substance: FULVESTRANT
     Indication: DISEASE PROGRESSION
     Route: 065
  11. TAXOL [Suspect]
     Active Substance: PACLITAXEL
     Indication: BREAST CANCER METASTATIC
     Dosage: 1 CYCLE
     Route: 065
     Dates: start: 20120208
  12. CALCIUM + D3                       /00944201/ [Concomitant]
     Active Substance: CALCIUM CARBONATE\CHOLECALCIFEROL
     Indication: PRODUCT USED FOR UNKNOWN INDICATION
     Route: 065
  13. VITAMINS NOS [Concomitant]
     Active Substance: VITAMINS
     Indication: PRODUCT USED FOR UNKNOWN INDICATION
     Route: 065
  14. PERTUZUMAB [Suspect]
     Active Substance: PERTUZUMAB
     Indication: HER-2 POSITIVE BREAST CANCER
  15. DOXORUBICIN HYDROCHLORIDE (ACTAVIS INC) [Suspect]
     Active Substance: DOXORUBICIN HYDROCHLORIDE
     Dosage: 4 CYCLES
     Route: 065
     Dates: start: 20111108, end: 201201
  16. HERCEPTIN [Suspect]
     Active Substance: TRASTUZUMAB
     Indication: HER-2 POSITIVE BREAST CANCER
  17. TAXOTERE [Suspect]
     Active Substance: DOCETAXEL
     Indication: BREAST CANCER METASTATIC
     Dosage: 1 CYCLE
     Route: 065
  18. KADCYLA [Suspect]
     Active Substance: ADO-TRASTUZUMAB EMTANSINE
     Indication: DISEASE PROGRESSION
     Dosage: UNK
     Route: 065
     Dates: start: 20140520
  19. XELODA [Suspect]
     Active Substance: CAPECITABINE
     Indication: DISEASE PROGRESSION
     Dosage: UNK
     Route: 065
     Dates: end: 201602

REACTIONS (4)
  - Hypoaesthesia oral [Recovered/Resolved]
  - Neuropathy peripheral [Unknown]
  - Malignant neoplasm progression [Not Recovered/Not Resolved]
  - Breast cancer recurrent [Unknown]

NARRATIVE: CASE EVENT DATE: 2014
